FAERS Safety Report 22076620 (Version 2)
Quarter: 2023Q2

REPORT INFORMATION
  Report Type: Report from Study
  Country: US (occurrence: US)
  Receive Date: 20230309
  Receipt Date: 20230513
  Transmission Date: 20230721
  Serious: Yes (Other)
  Sender: FDA-Public Use
  Company Number: US-002147023-NVSC2023US049061

PATIENT
  Age: 46 Year
  Sex: Female

DRUGS (1)
  1. KESIMPTA [Suspect]
     Active Substance: OFATUMUMAB
     Indication: Relapsing multiple sclerosis
     Dosage: 20 MG, QMO
     Route: 058
     Dates: start: 20230214

REACTIONS (7)
  - Autoimmune disorder [Unknown]
  - Pain [Unknown]
  - Fatigue [Unknown]
  - Memory impairment [Unknown]
  - Confusional state [Unknown]
  - JC polyomavirus test positive [Unknown]
  - Emotional distress [Unknown]

NARRATIVE: CASE EVENT DATE: 20230301
